FAERS Safety Report 21340328 (Version 1)
Quarter: 2022Q3

REPORT INFORMATION
  Report Type: Spontaneous
  Country: US (occurrence: US)
  Receive Date: 20220916
  Receipt Date: 20220916
  Transmission Date: 20221027
  Serious: No
  Sender: FDA-Public Use
  Company Number: US-KVK-TECH, INC-20220700053

PATIENT

DRUGS (9)
  1. OXYCODONE HYDROCHLORIDE [Suspect]
     Active Substance: OXYCODONE HYDROCHLORIDE
     Indication: Pain
     Dosage: 6 DOSAGE FORM, QD
     Dates: start: 2021
  2. OXYCODONE HYDROCHLORIDE [Suspect]
     Active Substance: OXYCODONE HYDROCHLORIDE
     Dosage: 7 DOSAGE FORM, QD
     Dates: start: 2021
  3. LINZESS [Suspect]
     Active Substance: LINACLOTIDE
     Indication: Small intestinal obstruction
  4. CARVEDILOL [Concomitant]
     Active Substance: CARVEDILOL
     Indication: Blood pressure abnormal
     Dosage: 25 MILLIGRAM
  5. TRAMADOL [Concomitant]
     Active Substance: TRAMADOL
     Indication: Pain
     Dosage: 50 MILLIGRAM
  6. MIRAPEX [Concomitant]
     Active Substance: PRAMIPEXOLE DIHYDROCHLORIDE
     Indication: Restless legs syndrome
     Dosage: UNK MILLIGRAM
  7. TIZANIDINE [Concomitant]
     Active Substance: TIZANIDINE
     Indication: Sleep disorder
     Dosage: 4 MILLIGRAM
  8. ADVIL [Concomitant]
     Active Substance: IBUPROFEN
  9. PROTONIX [Concomitant]
     Active Substance: PANTOPRAZOLE SODIUM
     Dosage: 1 DOSAGE FORM, QD (MORNING)

REACTIONS (1)
  - Drug ineffective [Unknown]

NARRATIVE: CASE EVENT DATE: 20220601
